FAERS Safety Report 10081467 (Version 1)
Quarter: 2014Q2

REPORT INFORMATION
  Report Type: Spontaneous
  Country: US (occurrence: None)
  Receive Date: 20140415
  Receipt Date: 20140415
  Transmission Date: 20141212
  Serious: No
  Sender: FDA-Public Use
  Company Number: None

PATIENT
  Age: 26 Year
  Sex: Male

DRUGS (1)
  1. PENTAMIDINE [Suspect]

REACTIONS (6)
  - Muscle spasms [None]
  - Vomiting [None]
  - Flushing [None]
  - Hyperhidrosis [None]
  - Abdominal pain [None]
  - Infusion related reaction [None]
